FAERS Safety Report 5119981-6 (Version None)
Quarter: 2006Q3

REPORT INFORMATION
  Report Type: 
  Country: None (occurrence: None)
  Receive Date: 20060929
  Receipt Date: 20060918
  Transmission Date: 20061208
  Serious: Yes (Other)
  Sender: FDA-Public Use
  Company Number: US018300

PATIENT
  Age: 31 Year
  Sex: Male
  Weight: 69 kg

DRUGS (2)
  1. PROVIGIL [Suspect]
     Indication: NARCOLEPSY
     Dates: start: 20010101
  2. CLOMIPRAMINE HCL [Concomitant]

REACTIONS (2)
  - HYPOAESTHESIA ORAL [None]
  - SENSORY DISTURBANCE [None]
